FAERS Safety Report 11088121 (Version 2)
Quarter: 2015Q2

REPORT INFORMATION
  Report Type: Spontaneous
  Country: US (occurrence: US)
  Receive Date: 20150504
  Receipt Date: 20150511
  Transmission Date: 20150821
  Serious: No
  Sender: FDA-Public Use
  Company Number: US-PFIZER INC-2015147453

PATIENT
  Age: 71 Year
  Sex: Male
  Weight: 81.63 kg

DRUGS (1)
  1. VIAGRA [Suspect]
     Active Substance: SILDENAFIL CITRATE
     Dosage: UNK
     Route: 048
     Dates: start: 2009, end: 201504

REACTIONS (2)
  - Drug ineffective [Unknown]
  - Weight decreased [Unknown]
